FAERS Safety Report 17438978 (Version 2)
Quarter: 2020Q2

REPORT INFORMATION
  Report Type: Spontaneous
  Country: US (occurrence: US)
  Receive Date: 20200220
  Receipt Date: 20200505
  Transmission Date: 20200713
  Serious: No
  Sender: FDA-Public Use
  Company Number: US-ASTRAZENECA-2020SE13402

PATIENT
  Age: 33403 Day
  Sex: Female
  Weight: 42.2 kg

DRUGS (3)
  1. NEBULIZER [Concomitant]
     Active Substance: DEVICE
  2. PROAIR OR ALBUTEROL [Concomitant]
     Indication: PRODUCT DOSE OMISSION
  3. SYMBICORT [Suspect]
     Active Substance: BUDESONIDE\FORMOTEROL FUMARATE DIHYDRATE
     Indication: ASTHMA
     Dosage: 160/4.5 MCG. 1 RESPIRATORY INHALATIONS. TWO TIMES A DAY.
     Route: 055
     Dates: start: 20200402

REACTIONS (4)
  - Device issue [Unknown]
  - Hypoacusis [Not Recovered/Not Resolved]
  - Wrong technique in device usage process [Recovered/Resolved]
  - Product dose omission [Not Recovered/Not Resolved]

NARRATIVE: CASE EVENT DATE: 20200117
